FAERS Safety Report 6343191-8 (Version None)
Quarter: 2009Q3

REPORT INFORMATION
  Report Type: 
  Country: None (occurrence: None)
  Receive Date: 20090903
  Receipt Date: 20090820
  Transmission Date: 20100115
  Serious: Yes (Death)
  Sender: FDA-Public Use
  Company Number: MPS1-1000256

PATIENT
  Age: 8 Year
  Sex: Male
  Weight: 17 kg

DRUGS (4)
  1. ALDURAZYME (LARONIDASE) CONCENTRATE  FOR INFUSION [Suspect]
     Indication: MUCOPOLYSACCHARIDOSIS
     Dosage: 0.68 MG/KG, QW
     Dates: start: 20070814, end: 20090812
  2. ACETAMINOPHEN [Concomitant]
  3. HYDROXYZINE [Concomitant]
  4. PHENYTOIN SODIUM [Concomitant]

REACTIONS (11)
  - CARDIAC ARREST [None]
  - CHRONIC RESPIRATORY FAILURE [None]
  - CONVULSION [None]
  - HAEMODYNAMIC INSTABILITY [None]
  - HYPERTENSION [None]
  - HYPOTENSION [None]
  - INFUSION RELATED REACTION [None]
  - NERVOUS SYSTEM DISORDER [None]
  - NO THERAPEUTIC RESPONSE [None]
  - PNEUMONIA [None]
  - RESPIRATORY ARREST [None]
